FAERS Safety Report 25562725 (Version 1)
Quarter: 2025Q3

REPORT INFORMATION
  Report Type: Report from Study
  Country: US (occurrence: US)
  Receive Date: 20250716
  Receipt Date: 20250716
  Transmission Date: 20251020
  Serious: Yes (Other)
  Sender: UCB
  Company Number: US-UCBSA-2025009961

PATIENT
  Age: 26 Year
  Sex: Male
  Weight: 49 kg

DRUGS (2)
  1. FINTEPLA [Suspect]
     Active Substance: FENFLURAMINE
     Indication: Lennox-Gastaut syndrome
     Dates: start: 20240917
  2. FINTEPLA [Suspect]
     Active Substance: FENFLURAMINE
     Dosage: 0.35 MG/KG/DAY, 5.9 MILLILITER, 2X/DAY (BID)
     Dates: start: 20241108, end: 20250128

REACTIONS (5)
  - Aortic valve incompetence [Not Recovered/Not Resolved]
  - Mitral valve incompetence [Not Recovered/Not Resolved]
  - Pulmonary valve incompetence [Unknown]
  - Tricuspid valve incompetence [Unknown]
  - Drug ineffective [Unknown]

NARRATIVE: CASE EVENT DATE: 20250610
